FAERS Safety Report 8085113-8 (Version None)
Quarter: 2012Q1

REPORT INFORMATION
  Report Type: 
  Country: None (occurrence: None)
  Receive Date: 20120128
  Receipt Date: 20110314
  Transmission Date: 20120608
  Serious: No
  Sender: FDA-Public Use
  Company Number: US-ABBOTT-11P-163-0711515-00

PATIENT
  Age: 31 Year
  Sex: Female

DRUGS (3)
  1. ZOLOFT [Concomitant]
     Indication: ANXIETY
  2. HUMIRA [Suspect]
     Indication: CROHN'S DISEASE
     Dates: start: 20101101
  3. UNKNOWN MEDICATION [Concomitant]
     Indication: CONTRACEPTION
     Dosage: 1 TAB DAILY 21 DAYS, OFF 7, THEN REPEATS

REACTIONS (2)
  - INJECTION SITE PRURITUS [None]
  - INJECTION SITE URTICARIA [None]
